FAERS Safety Report 6623119-3 (Version None)
Quarter: 2010Q1

REPORT INFORMATION
  Report Type: 
  Country: None (occurrence: None)
  Receive Date: 20100310
  Receipt Date: 20091214
  Transmission Date: 20100710
  Serious: No
  Sender: FDA-Public Use
  Company Number: US-BIOGENIDEC-2009BI040843

PATIENT
  Age: 55 Year
  Sex: Female

DRUGS (6)
  1. AVONEX [Suspect]
     Indication: MULTIPLE SCLEROSIS
     Route: 030
     Dates: start: 20091130
  2. HYDROCODONE [Concomitant]
     Indication: BACK PAIN
     Route: 048
  3. PIROXICAM [Concomitant]
     Indication: BACK PAIN
     Route: 048
  4. MORPHINE [Concomitant]
     Indication: BACK PAIN
     Route: 048
  5. AMITRIPTYLINE HCL [Concomitant]
     Indication: INSOMNIA
     Route: 048
  6. BACLOFEN [Concomitant]
     Indication: DRUG USE FOR UNKNOWN INDICATION
     Route: 048

REACTIONS (4)
  - FLUSHING [None]
  - INFLUENZA LIKE ILLNESS [None]
  - MUSCLE SPASMS [None]
  - THERMAL BURN [None]
